FAERS Safety Report 10870398 (Version 1)
Quarter: 2015Q1

REPORT INFORMATION
  Report Type: Spontaneous
  Country: US (occurrence: US)
  Receive Date: 20150226
  Receipt Date: 20150226
  Transmission Date: 20150721
  Serious: Yes (Death, Hospitalization)
  Sender: FDA-Public Use
  Company Number: US-JNJFOC-20150219216

PATIENT

DRUGS (1)
  1. IBUPROFEN. [Suspect]
     Active Substance: IBUPROFEN
     Indication: PATENT DUCTUS ARTERIOSUS
     Route: 042

REACTIONS (5)
  - Nephropathy toxic [Unknown]
  - Coagulopathy [Unknown]
  - Death [Fatal]
  - Product use issue [Unknown]
  - Drug ineffective for unapproved indication [Unknown]
